FAERS Safety Report 19510814 (Version 2)
Quarter: 2021Q4

REPORT INFORMATION
  Report Type: Report from Study
  Country: FR (occurrence: FR)
  Receive Date: 20210709
  Receipt Date: 20211012
  Transmission Date: 20220303
  Serious: Yes (Death)
  Sender: FDA-Public Use
  Company Number: FR-ONCOPEPPR-00833

PATIENT
  Age: 77 Year
  Sex: Female

DRUGS (3)
  1. MELPHALAN FLUFENAMIDE [Suspect]
     Active Substance: MELPHALAN FLUFENAMIDE
     Indication: Plasma cell myeloma
     Dosage: TIME INTERVAL: CYCLICAL
     Route: 042
     Dates: start: 20210618, end: 20210618
  2. MELPHALAN FLUFENAMIDE [Suspect]
     Active Substance: MELPHALAN FLUFENAMIDE
     Indication: Plasma cell myeloma
     Dosage: NOT REPORTED
     Route: 042
     Dates: start: 20210618, end: 20210618
  3. 352243 (GLOBALC3Mar20): Dexamethasone [Concomitant]
     Indication: Plasma cell myeloma

REACTIONS (3)
  - Haematotoxicity [Fatal]
  - Haemophagocytic lymphohistiocytosis [Unknown]
  - Sepsis [Unknown]

NARRATIVE: CASE EVENT DATE: 20210625
